FAERS Safety Report 9173402 (Version 1)
Quarter: 2013Q1

REPORT INFORMATION
  Report Type: Spontaneous
  Country: US (occurrence: None)
  Receive Date: 20130314
  Receipt Date: 20130314
  Transmission Date: 20140127
  Serious: Yes (Hospitalization)
  Sender: FDA-Public Use
  Company Number: 2013-03830

PATIENT
  Age: 40 Year
  Sex: Female

DRUGS (1)
  1. DICLOFENAC [Suspect]
     Indication: METATARSALGIA
     Route: 048

REACTIONS (4)
  - Convulsion [None]
  - Dizziness [None]
  - Heart rate decreased [None]
  - Malaise [None]
